FAERS Safety Report 17399147 (Version 9)
Quarter: 2023Q1

REPORT INFORMATION
  Report Type: Spontaneous
  Country: US (occurrence: US)
  Receive Date: 20200210
  Receipt Date: 20230104
  Transmission Date: 20230418
  Serious: No
  Sender: FDA-Public Use
  Company Number: US-PFIZER INC-2020053429

PATIENT
  Age: 61 Year
  Sex: Female

DRUGS (1)
  1. ENBREL [Suspect]
     Active Substance: ETANERCEPT
     Indication: Product used for unknown indication
     Dosage: UNK
     Route: 065

REACTIONS (7)
  - Malaise [Unknown]
  - Vomiting [Unknown]
  - Drug hypersensitivity [Unknown]
  - Rash pruritic [Unknown]
  - Rash [Unknown]
  - Drug ineffective [Unknown]
  - Anaemia [Unknown]
